FAERS Safety Report 9831647 (Version 1)
Quarter: 2014Q1

REPORT INFORMATION
  Report Type: Spontaneous
  Country: US (occurrence: US)
  Receive Date: 20140121
  Receipt Date: 20140121
  Transmission Date: 20141002
  Serious: No
  Sender: FDA-Public Use
  Company Number: US-PFIZER INC-2014016370

PATIENT
  Sex: Female

DRUGS (5)
  1. NEURONTIN [Suspect]
     Dosage: UNK
  2. LYRICA [Suspect]
     Indication: PSORIATIC ARTHROPATHY
     Dosage: UNK
  3. LYRICA [Suspect]
     Indication: RHEUMATOID ARTHRITIS
  4. LYRICA [Suspect]
     Indication: FIBROMYALGIA
  5. PLAQUENIL [Suspect]
     Dosage: UNK

REACTIONS (2)
  - Drug ineffective [Unknown]
  - Off label use [Unknown]
